FAERS Safety Report 8610613-9 (Version None)
Quarter: 2012Q3

REPORT INFORMATION
  Report Type: 
  Country: None (occurrence: None)
  Receive Date: 20120808
  Receipt Date: 20120724
  Transmission Date: 20120928
  Serious: Yes (Hospitalization)
  Sender: FDA-Public Use
  Company Number: JPI-P-023098

PATIENT
  Age: 60 Year
  Sex: Female

DRUGS (1)
  1. XYREM [Suspect]
     Indication: SLEEP DISORDER
     Dosage: ORAL
     Route: 048
     Dates: start: 20110726

REACTIONS (34)
  - HYPOTHYROIDISM [None]
  - INTENTIONAL SELF-INJURY [None]
  - AGORAPHOBIA [None]
  - TACHYPHRENIA [None]
  - BLOOD CHOLESTEROL INCREASED [None]
  - HIGH DENSITY LIPOPROTEIN INCREASED [None]
  - PARAESTHESIA [None]
  - FALL [None]
  - PALPITATIONS [None]
  - CATARACT OPERATION [None]
  - INSOMNIA [None]
  - BLOOD GLUCOSE INCREASED [None]
  - VISION BLURRED [None]
  - WEIGHT INCREASED [None]
  - DEPRESSION [None]
  - LIVER FUNCTION TEST ABNORMAL [None]
  - BLOOD PRESSURE DECREASED [None]
  - SLEEP DISORDER [None]
  - CRYING [None]
  - HYPERVENTILATION [None]
  - BLOOD PRESSURE SYSTOLIC INCREASED [None]
  - ANXIETY [None]
  - CONDITION AGGRAVATED [None]
  - FEELING ABNORMAL [None]
  - TREMOR [None]
  - LOW DENSITY LIPOPROTEIN INCREASED [None]
  - JOINT DISLOCATION [None]
  - POOR QUALITY SLEEP [None]
  - PANIC DISORDER [None]
  - DIABETES MELLITUS [None]
  - BLOOD PRESSURE INCREASED [None]
  - NAUSEA [None]
  - DECREASED APPETITE [None]
  - FATIGUE [None]
